FAERS Safety Report 18809630 (Version 1)
Quarter: 2021Q1

REPORT INFORMATION
  Report Type: Spontaneous
  Country: AU (occurrence: AU)
  Receive Date: 20210129
  Receipt Date: 20210129
  Transmission Date: 20210419
  Serious: Yes (Other)
  Sender: FDA-Public Use
  Company Number: AU-QUAGEN-2021QUALIT00012

PATIENT
  Age: 36 Year
  Sex: Female

DRUGS (2)
  1. PROPYLTHIOURACIL. [Suspect]
     Active Substance: PROPYLTHIOURACIL
     Indication: BASEDOW^S DISEASE
     Route: 065
  2. THYROXINE [Interacting]
     Active Substance: LEVOTHYROXINE
     Indication: HYPOTHYROIDISM
     Dosage: 400 MCG
     Route: 065

REACTIONS (3)
  - Congenital hypothyroidism [Recovered/Resolved]
  - Goitre congenital [Recovered/Resolved]
  - Foetal exposure during pregnancy [Unknown]
